FAERS Safety Report 14595089 (Version 1)
Quarter: 2018Q1

REPORT INFORMATION
  Report Type: Spontaneous
  Country: US (occurrence: US)
  Receive Date: 20180302
  Receipt Date: 20180302
  Transmission Date: 20180509
  Serious: No
  Sender: FDA-Public Use
  Company Number: US-AKORN PHARMACEUTICALS-2017AKN00165

PATIENT
  Sex: Female

DRUGS (3)
  1. STRATTERA [Concomitant]
     Active Substance: ATOMOXETINE HYDROCHLORIDE
  2. MYORISAN [Suspect]
     Active Substance: ISOTRETINOIN
     Indication: ACNE
     Dosage: UNK UNK, 1X/DAY
     Route: 048
     Dates: start: 20161128, end: 20170206
  3. CELEXA [Concomitant]
     Active Substance: CITALOPRAM HYDROBROMIDE

REACTIONS (4)
  - Nasal dryness [Recovered/Resolved]
  - Myalgia [Recovered/Resolved]
  - Dry skin [Recovered/Resolved]
  - Lip dry [Recovered/Resolved]
